FAERS Safety Report 5268886-9 (Version None)
Quarter: 2007Q1

REPORT INFORMATION
  Report Type: 
  Country: None (occurrence: None)
  Receive Date: 20061213
  Receipt Date: 20030827
  Transmission Date: 20070707
  Serious: Yes (Other)
  Sender: FDA-Public Use
  Company Number: 2003UW08084

PATIENT
  Age: 83 Year
  Sex: Male
  Weight: 78.9259 kg

DRUGS (3)
  1. IRESSA [Suspect]
     Indication: NON-SMALL CELL LUNG CANCER
     Dosage: 25 MG QD PO
     Route: 048
     Dates: start: 20020420
  2. VITAMINS [Concomitant]
  3. BABY ACETLYSALICYCLIC ACID [Concomitant]

REACTIONS (4)
  - BLOOD GLUCOSE INCREASED [None]
  - EATING DISORDER [None]
  - FATIGUE [None]
  - PRURITUS [None]
